FAERS Safety Report 6733942-2 (Version None)
Quarter: 2010Q2

REPORT INFORMATION
  Report Type: 
  Country: None (occurrence: None)
  Receive Date: 20100518
  Receipt Date: 20100505
  Transmission Date: 20101027
  Serious: Yes (Death)
  Sender: FDA-Public Use
  Company Number: 584982

PATIENT

DRUGS (7)
  1. CARBOPLATIN [Suspect]
     Indication: MEDULLOBLASTOMA
     Dosage: 500 MG/M 2 MILLIGRAM(S)/SQ. METER
  2. ETOPOSIDE [Suspect]
     Indication: MEDULLOBLASTOMA
     Dosage: 250 MG/M 2 MILLIGRAM(S)SQ. METER
  3. THIOTEPA [Suspect]
     Indication: MEDULLOBLASTOMA
     Dosage: 300 MG/M 2 MILLIGRAM(S)/SQ. METER
  4. ACYCLOVIR SODIUM [Concomitant]
  5. FLUCONAZOLE [Concomitant]
  6. PENTAMIDINE ISETHIONATE [Concomitant]
  7. (GRANULOCYTE COLONY STIMULATING FACTOR) [Concomitant]

REACTIONS (7)
  - HAEMATOTOXICITY [None]
  - MUCOSAL INFLAMMATION [None]
  - NEUTROPENIA [None]
  - PLEURAL EFFUSION [None]
  - PYREXIA [None]
  - SEPSIS [None]
  - VENOOCCLUSIVE DISEASE [None]
